FAERS Safety Report 17515007 (Version 1)
Quarter: 2020Q1

REPORT INFORMATION
  Report Type: Spontaneous
  Country: FR (occurrence: FR)
  Receive Date: 20200309
  Receipt Date: 20200309
  Transmission Date: 20200409
  Serious: Yes (Death, Other)
  Sender: FDA-Public Use
  Company Number: FR-AMGEN-FRASP2020036345

PATIENT

DRUGS (4)
  1. ENDOXAN [CYCLOPHOSPHAMIDE] [Suspect]
     Active Substance: CYCLOPHOSPHAMIDE
     Indication: OVARIAN EPITHELIAL CANCER
     Dosage: 1800 MILLIGRAM/SQ. METER, Q3WK
     Route: 042
     Dates: start: 199402
  2. NEUPOGEN [Suspect]
     Active Substance: FILGRASTIM
     Indication: PRODUCT USED FOR UNKNOWN INDICATION
     Dosage: 5 MICROGRAM/KILOGRAM, Q3WK  (PER DAY FROM DAY 2 TO DAY 11)
     Route: 065
     Dates: start: 199402
  3. CISPLATYL [Suspect]
     Active Substance: CISPLATIN
     Indication: OVARIAN EPITHELIAL CANCER
     Dosage: 75 MILLIGRAM/SQ. METER
     Route: 042
     Dates: start: 199402
  4. FARMORUBICINE [Suspect]
     Active Substance: EPIRUBICIN HYDROCHLORIDE
     Indication: OVARIAN EPITHELIAL CANCER
     Dosage: 50 MILLIGRAM/SQ. METER, Q3WK
     Route: 040
     Dates: start: 199402

REACTIONS (20)
  - Mucosal inflammation [Unknown]
  - Nausea [Unknown]
  - Blood alkaline phosphatase increased [Unknown]
  - Leukopenia [Unknown]
  - Diarrhoea [Unknown]
  - Blood creatinine increased [Unknown]
  - Neutropenia [Unknown]
  - Infection [Unknown]
  - Thrombocytopenia [Unknown]
  - Fatigue [Unknown]
  - Toxicity to various agents [Fatal]
  - Constipation [Unknown]
  - Arrhythmia [Unknown]
  - Neuropathy peripheral [Unknown]
  - Vomiting [Unknown]
  - Adverse event [Unknown]
  - Anaemia [Unknown]
  - Haematotoxicity [Unknown]
  - Disease progression [Unknown]
  - Alopecia [Unknown]
